FAERS Safety Report 10551482 (Version 1)
Quarter: 2014Q4

REPORT INFORMATION
  Report Type: Spontaneous
  Country: US (occurrence: None)
  Receive Date: 20141027
  Receipt Date: 20141027
  Transmission Date: 20150529
  Serious: Yes (Death)
  Sender: FDA-Public Use
  Company Number: FK201404398

PATIENT
  Age: 81 Year
  Sex: Female

DRUGS (1)
  1. PROPOFOL (MANUFACTURER UNKNOWN) (PROPOFOL) (PROPOFOL) [Suspect]
     Active Substance: PROPOFOL
     Indication: SEDATION
     Route: 042

REACTIONS (6)
  - Laryngospasm [None]
  - Cardiac arrest [None]
  - Respiratory arrest [None]
  - Arrhythmia [None]
  - Hypoxic-ischaemic encephalopathy [None]
  - Procedural complication [None]
